FAERS Safety Report 6735616-0 (Version None)
Quarter: 2010Q2

REPORT INFORMATION
  Report Type: 
  Country: None (occurrence: None)
  Receive Date: 20100519
  Receipt Date: 20100504
  Transmission Date: 20101027
  Serious: Yes (Disabling)
  Sender: FDA-Public Use
  Company Number: 2010-1625

PATIENT
  Age: 19 Year
  Sex: Male
  Weight: 50 kg

DRUGS (2)
  1. DYSPORT [Suspect]
     Indication: BRAIN INJURY
     Dosage: 400 UNITS (400 UNITS, SINGLE CYCLE), INTRAMUSCULAR
     Route: 030
  2. BOTULINUM TOXIN TYPE A [Suspect]
     Indication: OFF LABEL USE

REACTIONS (1)
  - MUSCULAR WEAKNESS [None]
